FAERS Safety Report 5519120-3 (Version None)
Quarter: 2007Q4

REPORT INFORMATION
  Report Type: 
  Country: None (occurrence: None)
  Receive Date: 20071114
  Receipt Date: 20071114
  Transmission Date: 20080405
  Serious: Yes (Death)
  Sender: FDA-Public Use
  Company Number: None

PATIENT
  Age: 49 Year
  Sex: Female
  Weight: 75 kg

DRUGS (16)
  1. GLEEVEC [Suspect]
     Indication: GLIOBLASTOMA
     Dosage: 700 MG QD  PO
     Route: 048
  2. HYDROXYUREA [Suspect]
     Indication: GLIOBLASTOMA MULTIFORME
     Dosage: 500 MG, BID PO
     Route: 048
  3. RAD001 [Suspect]
     Indication: GLIOBLASTOMA MULTIFORME
     Dosage: 2.5MG QOD  PO
     Route: 048
  4. LOVENOX [Concomitant]
  5. CELEXA [Concomitant]
  6. DEXAMETHASONE [Concomitant]
  7. PROTONIX [Concomitant]
  8. KEPPRA [Concomitant]
  9. DILANTIN [Concomitant]
  10. BENADRYL [Concomitant]
  11. APRAZOLAM [Concomitant]
  12. ZYRTEC [Concomitant]
  13. CODEINE COUGH SYRUP [Concomitant]
  14. STOOL SOFTENER [Concomitant]
  15. MULTI-VITAMIN [Concomitant]
  16. CALCIUM [Concomitant]

REACTIONS (9)
  - BLINDNESS UNILATERAL [None]
  - COGNITIVE DISORDER [None]
  - GAIT DISTURBANCE [None]
  - GENERAL PHYSICAL HEALTH DETERIORATION [None]
  - HEADACHE [None]
  - MEMORY IMPAIRMENT [None]
  - NEOPLASM PROGRESSION [None]
  - PETIT MAL EPILEPSY [None]
  - WEIGHT INCREASED [None]
